FAERS Safety Report 19153006 (Version 2)
Quarter: 2021Q2

REPORT INFORMATION
  Report Type: Spontaneous
  Country: US (occurrence: US)
  Receive Date: 20210419
  Receipt Date: 20210430
  Transmission Date: 20210717
  Serious: No
  Sender: FDA-Public Use
  Company Number: US-TEVA-2021-US-1898672

PATIENT
  Sex: Female

DRUGS (3)
  1. LIDOCAINE. [Suspect]
     Active Substance: LIDOCAINE
     Indication: BACK PAIN
  2. LIDOCAINE. [Suspect]
     Active Substance: LIDOCAINE
     Indication: MYALGIA
     Route: 062
     Dates: start: 20210312
  3. LIDOCAINE. [Suspect]
     Active Substance: LIDOCAINE
     Indication: VACCINATION SITE SWELLING

REACTIONS (3)
  - Injection site erythema [Unknown]
  - Drug ineffective [Unknown]
  - Injection site pain [Unknown]
